FAERS Safety Report 24535006 (Version 1)
Quarter: 2024Q4

REPORT INFORMATION
  Report Type: Spontaneous
  Country: BG (occurrence: BG)
  Receive Date: 20241022
  Receipt Date: 20241022
  Transmission Date: 20250115
  Serious: Yes (Hospitalization)
  Sender: STRIDES
  Company Number: BG-STRIDES ARCOLAB LIMITED-2024SP013519

PATIENT
  Sex: Female

DRUGS (9)
  1. PROPAFENONE [Suspect]
     Active Substance: PROPAFENONE
     Indication: Hypertension
     Dosage: 150 MILLIGRAM, OD
     Route: 065
  2. PROPAFENONE [Suspect]
     Active Substance: PROPAFENONE
     Dosage: 150 MILLIGRAM, BID
     Route: 065
  3. CYANOCOBALAMIN [Suspect]
     Active Substance: CYANOCOBALAMIN
     Indication: Trigeminal neuralgia
     Dosage: UNK
     Route: 065
  4. BISOPROLOL [Suspect]
     Active Substance: BISOPROLOL\BISOPROLOL FUMARATE
     Indication: Hypertension
     Dosage: 5 MILLIGRAM, OD
     Route: 065
  5. LISINOPRIL AND HYDROCHLOROTHIAZIDE [Suspect]
     Active Substance: HYDROCHLOROTHIAZIDE\LISINOPRIL
     Indication: Hypertension
     Dosage: UNK, OD
     Route: 065
  6. LISINOPRIL AND HYDROCHLOROTHIAZIDE [Suspect]
     Active Substance: HYDROCHLOROTHIAZIDE\LISINOPRIL
     Dosage: UNK, OD (HALF A TABLET)
     Route: 065
  7. CARBAMAZEPINE [Concomitant]
     Active Substance: CARBAMAZEPINE
     Indication: Trigeminal neuralgia
     Dosage: 200 MILLIGRAM
     Route: 065
  8. BENFOTIAMINE [Concomitant]
     Active Substance: BENFOTIAMINE
     Indication: Trigeminal neuralgia
     Dosage: UNK
     Route: 065
  9. PYRIDOXINE HYDROCHLORIDE [Concomitant]
     Active Substance: PYRIDOXINE HYDROCHLORIDE
     Indication: Trigeminal neuralgia
     Dosage: UNK
     Route: 065

REACTIONS (5)
  - Basal cell carcinoma [Recovered/Resolved]
  - Squamous cell carcinoma [Recovered/Resolved]
  - Keratoacanthoma [Recovered/Resolved]
  - Product with quality issue administered [Unknown]
  - Off label use [Unknown]
